FAERS Safety Report 23689830 (Version 1)
Quarter: 2024Q1

REPORT INFORMATION
  Report Type: Spontaneous
  Country: US (occurrence: US)
  Receive Date: 20240331
  Receipt Date: 20240331
  Transmission Date: 20240410
  Serious: No
  Sender: FDA-Public Use
  Company Number: US-SA-SAC20240322000782

PATIENT
  Sex: Female
  Weight: 148 kg

DRUGS (1)
  1. DUPIXENT [Suspect]
     Active Substance: DUPILUMAB
     Indication: Dermatitis atopic
     Dosage: 300 MG, QOW
     Route: 058

REACTIONS (3)
  - Skin irritation [Not Recovered/Not Resolved]
  - Skin erosion [Not Recovered/Not Resolved]
  - Dermatitis atopic [Not Recovered/Not Resolved]
